FAERS Safety Report 16360418 (Version 2)
Quarter: 2020Q2

REPORT INFORMATION
  Report Type: Report from Study
  Country: US (occurrence: US)
  Receive Date: 20190528
  Receipt Date: 20200430
  Transmission Date: 20200713
  Serious: No
  Sender: FDA-Public Use
  Company Number: US-B.I. PHARMACEUTICALS,INC./RIDGEFIELD-2019-BI-023337

PATIENT
  Age: 53 Year
  Sex: Male

DRUGS (1)
  1. OFEV [Suspect]
     Active Substance: NINTEDANIB
     Indication: IDIOPATHIC PULMONARY FIBROSIS
     Dosage: 150MG TWICE DAILY, 12 HOURS APART, WITH FOOD
     Route: 048
     Dates: start: 20190509

REACTIONS (2)
  - Diarrhoea [Not Recovered/Not Resolved]
  - Wrong dose [Recovered/Resolved]

NARRATIVE: CASE EVENT DATE: 20190522
